FAERS Safety Report 8447390 (Version 3)
Quarter: 2012Q4

REPORT INFORMATION
  Report Type: Report from Study
  Country: US (occurrence: US)
  Receive Date: 20120308
  Receipt Date: 20121009
  Transmission Date: 20130627
  Serious: Yes (Hospitalization)
  Sender: FDA-Public Use
  Company Number: US-JNJFOC-20120214532

PATIENT
  Age: 16 Year
  Sex: Female
  Weight: 55.5 kg

DRUGS (4)
  1. REMICADE [Suspect]
     Indication: COLITIS ULCERATIVE
     Route: 042
     Dates: start: 20100625
  2. ANTIBIOTICS [Concomitant]
     Indication: INFLAMMATORY BOWEL DISEASE
  3. PROBIOTICS [Concomitant]
  4. IRON [Concomitant]

REACTIONS (1)
  - Colitis ulcerative [Recovered/Resolved]
